FAERS Safety Report 8440066-5 (Version None)
Quarter: 2012Q2

REPORT INFORMATION
  Report Type: 
  Country: None (occurrence: None)
  Receive Date: 20120615
  Receipt Date: 20120607
  Transmission Date: 20120825
  Serious: Yes (Hospitalization, Other)
  Sender: FDA-Public Use
  Company Number: US-ABBOTT-12P-163-0944241-00

PATIENT
  Age: 65 Year
  Sex: Female

DRUGS (13)
  1. PREDNISONE TAB [Concomitant]
     Indication: PRODUCT USED FOR UNKNOWN INDICATION
  2. THEOPHYLLINE [Concomitant]
     Indication: CHRONIC OBSTRUCTIVE PULMONARY DISEASE
  3. SALCYLATE [Concomitant]
     Indication: INFLAMMATION
  4. VITAMIN D [Concomitant]
     Indication: PRODUCT USED FOR UNKNOWN INDICATION
     Dosage: 50 M.U., WEEKLY
  5. THEOPHYLLINE [Concomitant]
     Indication: ASTHMA
  6. TORSEMIDE [Concomitant]
     Indication: FLUID RETENTION
     Dosage: 1.5 - 2 TABLETS, DAILY
  7. MORPHINE [Concomitant]
     Indication: PAIN
  8. HUMIRA [Suspect]
     Indication: RHEUMATOID ARTHRITIS
     Dates: start: 20120101
  9. LEUCOVORIN CALCIUM [Concomitant]
     Indication: PRODUCT USED FOR UNKNOWN INDICATION
  10. LEFLUNOMIDE [Concomitant]
     Indication: ARTHRITIS
  11. HYDROCHLOROQUINE [Concomitant]
     Indication: PRODUCT USED FOR UNKNOWN INDICATION
  12. ACETAMINOPHEN W/ CODEINE [Concomitant]
     Indication: PAIN
     Dosage: NO MORE THATN 6 TABLETS A DAY, AS NEEDED
  13. DICYCLOMINE [Concomitant]
     Indication: GASTROINTESTINAL PAIN
     Dosage: 3-4 TIMES A DAY

REACTIONS (17)
  - SKIN BURNING SENSATION [None]
  - BACK PAIN [None]
  - CARDIAC VENTRICULAR DISORDER [None]
  - CARPAL TUNNEL SYNDROME [None]
  - HYPOAESTHESIA [None]
  - PARAESTHESIA [None]
  - ATRIAL FIBRILLATION [None]
  - RASH PAPULAR [None]
  - LOCALISED INFECTION [None]
  - MOOD SWINGS [None]
  - PAIN IN EXTREMITY [None]
  - FEELING ABNORMAL [None]
  - OXYGEN SATURATION DECREASED [None]
  - MYALGIA [None]
  - CHRONIC OBSTRUCTIVE PULMONARY DISEASE [None]
  - MYOCARDIAL INFARCTION [None]
  - MALAISE [None]
